FAERS Safety Report 10024354 (Version 4)
Quarter: 2014Q2

REPORT INFORMATION
  Report Type: Report from Study
  Country: AU (occurrence: AU)
  Receive Date: 20140320
  Receipt Date: 20140409
  Transmission Date: 20141212
  Serious: Yes (Hospitalization, Other)
  Sender: FDA-Public Use
  Company Number: AU-ROCHE-1000056

PATIENT
  Age: 75 Year
  Sex: Male

DRUGS (1)
  1. ACTEMRA [Suspect]
     Indication: RHEUMATOID ARTHRITIS
     Route: 065
     Dates: start: 20101210

REACTIONS (3)
  - Cellulitis [Recovered/Resolved]
  - Immunodeficiency [Unknown]
  - Arthropod bite [Recovering/Resolving]
